FAERS Safety Report 7457344-9 (Version None)
Quarter: 2011Q2

REPORT INFORMATION
  Report Type: 
  Country: None (occurrence: None)
  Receive Date: 20110504
  Receipt Date: 20100812
  Transmission Date: 20111010
  Serious: No
  Sender: FDA-Public Use
  Company Number: US-KINGPHARMUSA00001-K201001026

PATIENT
  Age: 53 Year
  Sex: Male

DRUGS (6)
  1. ZYRTEC [Concomitant]
     Indication: SEASONAL ALLERGY
  2. XANAX [Concomitant]
     Indication: ANXIETY DISORDER
  3. NEXIUM [Concomitant]
     Indication: GASTROOESOPHAGEAL REFLUX DISEASE
  4. AVINZA [Suspect]
     Indication: BACK PAIN
     Dosage: 60 MG, QD
     Route: 048
  5. TOPAMAX [Concomitant]
     Indication: HYPERTENSION
  6. XANAX [Concomitant]
     Indication: DEPRESSION

REACTIONS (1)
  - DRUG SCREEN NEGATIVE [None]
